FAERS Safety Report 4839894-4 (Version None)
Quarter: 2005Q4

REPORT INFORMATION
  Report Type: 
  Country: None (occurrence: None)
  Receive Date: 20051129
  Receipt Date: 20051117
  Transmission Date: 20060501
  Serious: Yes (Congenital Anomaly)
  Sender: FDA-Public Use
  Company Number: GR-ROCHE-425586

PATIENT
  Age: 16 Year
  Sex: Female

DRUGS (1)
  1. ROACCUTANE [Suspect]
     Indication: ACNE
     Dosage: STOPPED TREATMENT AT WEEK 16 OF GESTATION.
     Route: 065

REACTIONS (8)
  - CONGENITAL GASTRIC ANOMALY [None]
  - FOETAL MALFORMATION [None]
  - GROWTH RETARDATION [None]
  - INDUCED LABOUR [None]
  - OESOPHAGEAL ATRESIA [None]
  - PREGNANCY [None]
  - SKULL MALFORMATION [None]
  - VENTRICULAR SEPTAL DEFECT [None]
